FAERS Safety Report 10267340 (Version 1)
Quarter: 2014Q2

REPORT INFORMATION
  Report Type: Spontaneous
  Country: GB (occurrence: GB)
  Receive Date: 20140630
  Receipt Date: 20140630
  Transmission Date: 20141212
  Serious: Yes (Hospitalization)
  Sender: FDA-Public Use
  Company Number: GB-DRREDDYS-GER/UKI/14/0041355

PATIENT
  Age: 89 Year
  Sex: Male

DRUGS (1)
  1. MEMANTIN [Suspect]
     Indication: DEMENTIA ALZHEIMER^S TYPE
     Route: 048

REACTIONS (4)
  - Abnormal behaviour [Unknown]
  - Hospitalisation [Recovered/Resolved]
  - Off label use [Unknown]
  - Drug withdrawal syndrome [Unknown]
